FAERS Safety Report 20142163 (Version 2)
Quarter: 2022Q2

REPORT INFORMATION
  Report Type: Spontaneous
  Country: ES (occurrence: ES)
  Receive Date: 20211202
  Receipt Date: 20220401
  Transmission Date: 20220720
  Serious: Yes (Death, Hospitalization, Other)
  Sender: FDA-Public Use
  Company Number: ES-drreddys-LIT/SPN/21/0142624

PATIENT
  Age: 47 Year
  Sex: Female

DRUGS (10)
  1. AZACITIDINE [Interacting]
     Active Substance: AZACITIDINE
     Indication: Product used for unknown indication
     Dosage: 525 MILLIGRAM/SQ. METER
  2. BUSULFAN [Interacting]
     Active Substance: BUSULFAN
     Indication: Acute myeloid leukaemia
     Dosage: UNK
     Route: 065
  3. BUSULFAN [Interacting]
     Active Substance: BUSULFAN
     Indication: Bone marrow conditioning regimen
     Dosage: UNK
  4. FLUDARABINE [Interacting]
     Active Substance: FLUDARABINE PHOSPHATE
     Indication: Bone marrow conditioning regimen
     Dosage: UNK
  5. FLUDARABINE [Interacting]
     Active Substance: FLUDARABINE PHOSPHATE
     Indication: Acute myeloid leukaemia
     Dosage: UNK
     Route: 065
  6. TACROLIMUS [Interacting]
     Active Substance: TACROLIMUS
     Indication: Prophylaxis against graft versus host disease
     Dosage: UNK
     Route: 065
  7. RAPAMYCIN [Interacting]
     Active Substance: SIROLIMUS
     Indication: Prophylaxis against graft versus host disease
     Dosage: UNK
     Route: 065
  8. VENETOCLAX [Interacting]
     Active Substance: VENETOCLAX
     Indication: Acute myeloid leukaemia
     Dosage: 100 MG DAILY TO A MAXIMUM DOSE OF 400 MG
     Route: 065
  9. AZATHIOPRINE [Interacting]
     Active Substance: AZATHIOPRINE
     Indication: Product used for unknown indication
     Dosage: 75 MG/M2 DAYS 1?7 OF EACH 28-DAY CYCLE
     Route: 065
  10. DECITABINE [Interacting]
     Active Substance: DECITABINE
     Indication: Acute myeloid leukaemia
     Dosage: 20 MG/M2 ? DAYS 1-5 OF EACH28-DAY CYCLE
     Route: 065

REACTIONS (14)
  - Septic shock [Fatal]
  - Pneumonia [Fatal]
  - Escherichia bacteraemia [Unknown]
  - Faeces pale [Unknown]
  - Febrile neutropenia [Unknown]
  - Pneumonia klebsiella [Unknown]
  - Systemic candida [Unknown]
  - Toxicity to various agents [Unknown]
  - Bowel movement irregularity [Unknown]
  - Drug interaction [Unknown]
  - Myelosuppression [Unknown]
  - Splenic abscess [Unknown]
  - Immunosuppression [Unknown]
  - Drug ineffective [Unknown]

NARRATIVE: CASE EVENT DATE: 20190601
